FAERS Safety Report 16190133 (Version 1)
Quarter: 2019Q2

REPORT INFORMATION
  Report Type: Spontaneous
  Country: US (occurrence: US)
  Receive Date: 20190308
  Receipt Date: 20190308
  Transmission Date: 20190711
  Serious: Yes (Other)
  Sender: FDA-Public Use
  Company Number: None

PATIENT

DRUGS (1)
  1. NEWULIFE SOMADERM GEL [Suspect]
     Active Substance: HOMEOPATHICS
     Dosage: ?          OTHER DOSE:3.5 OUNCES BOTTLE;?
     Dates: start: 201808, end: 20190121

REACTIONS (6)
  - Nervousness [None]
  - Pruritus [None]
  - Weight increased [None]
  - Product complaint [None]
  - Application site erythema [None]
  - Rash [None]

NARRATIVE: CASE EVENT DATE: 20190121
